FAERS Safety Report 7964914-8 (Version None)
Quarter: 2011Q4

REPORT INFORMATION
  Report Type: 
  Country: None (occurrence: None)
  Receive Date: 20111208
  Receipt Date: 20111206
  Transmission Date: 20120403
  Serious: Yes (Hospitalization)
  Sender: FDA-Public Use
  Company Number: FR-ROCHE-1019315

PATIENT
  Age: 71 Year
  Sex: Male

DRUGS (4)
  1. SOLU-MEDROL [Concomitant]
  2. MABTHERA [Suspect]
     Indication: PRODUCT USED FOR UNKNOWN INDICATION
     Route: 042
     Dates: start: 20111013
  3. ACETAMINOPHEN [Concomitant]
  4. POLARAMINE [Concomitant]

REACTIONS (1)
  - ERYTHROSIS [None]
